FAERS Safety Report 23986035 (Version 3)
Quarter: 2024Q2

REPORT INFORMATION
  Report Type: Spontaneous
  Country: JP (occurrence: JP)
  Receive Date: 20240618
  Receipt Date: 20240626
  Transmission Date: 20240716
  Serious: Yes (Other)
  Sender: FDA-Public Use
  Company Number: JP-BAYER-2024A087760

PATIENT
  Age: 65 Year
  Sex: Male

DRUGS (3)
  1. NUBEQA [Suspect]
     Active Substance: DAROLUTAMIDE
     Indication: Hormone-dependent prostate cancer
     Dosage: DAILY DOSE 1200 MG
     Dates: start: 20240528
  2. LEUPLIN [Suspect]
     Active Substance: LEUPROLIDE ACETATE
     Indication: Hormone-dependent prostate cancer
     Dosage: UNK
     Dates: start: 20240528
  3. DOCETAXEL [Suspect]
     Active Substance: DOCETAXEL\DOCETAXEL ANHYDROUS
     Indication: Hormone-dependent prostate cancer
     Dosage: UNK
     Dates: start: 20240604, end: 20240604

REACTIONS (4)
  - Urinary bladder rupture [Recovering/Resolving]
  - Bladder tamponade [None]
  - Urinary retention [None]
  - Haematuria [None]

NARRATIVE: CASE EVENT DATE: 20240615
